FAERS Safety Report 25040480 (Version 1)
Quarter: 2025Q1

REPORT INFORMATION
  Report Type: Spontaneous
  Country: US (occurrence: US)
  Receive Date: 20250305
  Receipt Date: 20250305
  Transmission Date: 20250409
  Serious: No
  Sender: TEVA
  Company Number: US-TEVA-VS-3300901

PATIENT
  Age: 66 Year
  Sex: Female

DRUGS (7)
  1. TRAMADOL HCL [Suspect]
     Active Substance: TRAMADOL HYDROCHLORIDE
     Indication: Sleep disorder
     Route: 065
  2. TRAMADOL HCL [Suspect]
     Active Substance: TRAMADOL HYDROCHLORIDE
     Indication: Sleep disorder
     Route: 065
  3. METHYLPREDNISOLONE [Concomitant]
     Active Substance: METHYLPREDNISOLONE
     Indication: Product used for unknown indication
  4. TRELEGY ELLIPTA [Concomitant]
     Active Substance: FLUTICASONE FUROATE\UMECLIDINIUM BROMIDE\VILANTEROL TRIFENATATE
     Indication: Product used for unknown indication
  5. ATENOLOL [Concomitant]
     Active Substance: ATENOLOL
     Indication: Blood pressure measurement
  6. ELIQUIS [Concomitant]
     Active Substance: APIXABAN
     Indication: Anticoagulant therapy
  7. PRAMIPEXOLE [Concomitant]
     Active Substance: PRAMIPEXOLE
     Indication: Product used for unknown indication

REACTIONS (14)
  - Hypoacusis [Unknown]
  - Wrong technique in product usage process [Unknown]
  - Swelling [Unknown]
  - Urticaria [Unknown]
  - Eye swelling [Unknown]
  - Product use in unapproved indication [Unknown]
  - Pain [Unknown]
  - Feeling abnormal [Unknown]
  - Lip swelling [Unknown]
  - Incorrect dose administered [Unknown]
  - Urticaria [Unknown]
  - Vision blurred [Unknown]
  - Hypersensitivity [Unknown]
  - Drug ineffective [Unknown]
